FAERS Safety Report 16439040 (Version 7)
Quarter: 2020Q4

REPORT INFORMATION
  Report Type: Spontaneous
  Country: US (occurrence: US)
  Receive Date: 20190617
  Receipt Date: 20201211
  Transmission Date: 20210113
  Serious: Yes (Other)
  Sender: FDA-Public Use
  Company Number: US-GLAXOSMITHKLINE-US2019GSK107529

PATIENT
  Age: 51 Year
  Sex: Female

DRUGS (17)
  1. PREVACID 24 HR [Suspect]
     Active Substance: LANSOPRAZOLE
     Indication: PEPTIC ULCER
  2. LANSOPRAZOLE ACTAVIS [Suspect]
     Active Substance: LANSOPRAZOLE
     Indication: GASTROOESOPHAGEAL REFLUX DISEASE
     Dosage: UNK
     Route: 065
  3. PRILOSEC [Suspect]
     Active Substance: OMEPRAZOLE MAGNESIUM
     Indication: PRODUCT USED FOR UNKNOWN INDICATION
     Dosage: 40 MG, QD
     Route: 065
     Dates: start: 199701, end: 201801
  4. PROTONIX [Suspect]
     Active Substance: PANTOPRAZOLE SODIUM
     Indication: PRODUCT USED FOR UNKNOWN INDICATION
     Dosage: UNK
     Route: 065
  5. OMEPRAZOLE. [Suspect]
     Active Substance: OMEPRAZOLE
     Indication: GASTROOESOPHAGEAL REFLUX DISEASE
     Dosage: 20 MG, QD
     Route: 065
     Dates: start: 200807, end: 200808
  6. PREVACID 24 HR [Suspect]
     Active Substance: LANSOPRAZOLE
     Indication: GASTROOESOPHAGEAL REFLUX DISEASE
     Dosage: 15 MG, QD
     Route: 048
  7. PREVACID [Suspect]
     Active Substance: LANSOPRAZOLE
     Indication: PEPTIC ULCER
     Dosage: 30 MG, QD
     Dates: start: 199701, end: 201801
  8. ESOMEPRAZOLE. [Suspect]
     Active Substance: ESOMEPRAZOLE MAGNESIUM
     Indication: GASTROOESOPHAGEAL REFLUX DISEASE
     Dosage: 40 MG, QD
     Route: 065
  9. PREVACID 24 HR [Suspect]
     Active Substance: LANSOPRAZOLE
     Indication: GASTRIC DISORDER
  10. PANTOPRAZOLE [Suspect]
     Active Substance: PANTOPRAZOLE
     Indication: GASTROOESOPHAGEAL REFLUX DISEASE
     Dosage: 40 MG, QD
     Route: 048
     Dates: start: 201311
  11. PREVACID [Suspect]
     Active Substance: LANSOPRAZOLE
     Indication: GASTRIC DISORDER
  12. NEXIUM 24HR [Suspect]
     Active Substance: ESOMEPRAZOLE MAGNESIUM
     Indication: PRODUCT USED FOR UNKNOWN INDICATION
     Dosage: UNK
     Route: 065
  13. OMEPRAZOLE. [Suspect]
     Active Substance: OMEPRAZOLE
     Dosage: 20 MG, QD
     Route: 065
     Dates: start: 201209, end: 201212
  14. PREVACID 24 HR [Suspect]
     Active Substance: LANSOPRAZOLE
     Indication: GASTRIC DISORDER
  15. PREVACID [Suspect]
     Active Substance: LANSOPRAZOLE
     Indication: GASTROOESOPHAGEAL REFLUX DISEASE
     Dosage: 40 MG, QD
     Route: 065
  16. NEXIUM [Suspect]
     Active Substance: ESOMEPRAZOLE MAGNESIUM
     Indication: PRODUCT USED FOR UNKNOWN INDICATION
     Dosage: UNK
     Route: 065
     Dates: start: 201003, end: 201103
  17. PRILOSEC [Suspect]
     Active Substance: OMEPRAZOLE MAGNESIUM
     Dosage: 20 MG, QD
     Route: 065
     Dates: start: 200306, end: 200912

REACTIONS (22)
  - Hepatorenal syndrome [Unknown]
  - Renal tubular necrosis [Unknown]
  - Dysuria [Unknown]
  - Blood creatinine increased [Unknown]
  - Acute kidney injury [Not Recovered/Not Resolved]
  - Urinary incontinence [Unknown]
  - Device dependence [Unknown]
  - Diabetic nephropathy [Unknown]
  - Renal transplant [Unknown]
  - Renal failure [Unknown]
  - Blood urea increased [Unknown]
  - Renal injury [Unknown]
  - Hepatorenal failure [Unknown]
  - End stage renal disease [Not Recovered/Not Resolved]
  - Tubulointerstitial nephritis [Unknown]
  - Nephropathy [Unknown]
  - Dialysis [Not Recovered/Not Resolved]
  - Chronic kidney disease [Not Recovered/Not Resolved]
  - Nephrogenic anaemia [Unknown]
  - Nephrotic syndrome [Unknown]
  - Renal impairment [Unknown]
  - Renal pain [Unknown]

NARRATIVE: CASE EVENT DATE: 201304
